FAERS Safety Report 6236719-X (Version None)
Quarter: 2009Q2

REPORT INFORMATION
  Report Type: 
  Country: None (occurrence: None)
  Receive Date: 20090619
  Receipt Date: 20090608
  Transmission Date: 20091009
  Serious: Yes (Other)
  Sender: FDA-Public Use
  Company Number: PHHY2009CA14244

PATIENT
  Sex: Male

DRUGS (5)
  1. LOPRESSOR [Suspect]
     Indication: ARTERIAL DISORDER
     Dosage: 25 MG, BID
     Dates: start: 20090301
  2. LOPRESSOR [Suspect]
     Indication: HYPERTENSION
     Dosage: 12.5 MG, BID
     Dates: start: 20090501
  3. DIOVAN [Suspect]
     Dosage: 80 MG, ONCE A DAY
     Route: 048
  4. DIOVAN [Suspect]
     Dosage: 160 MG, UNK
     Route: 048
  5. CIPRALEX [Concomitant]
     Indication: DEPRESSION
     Dosage: 20 MG, QD

REACTIONS (8)
  - AGITATION [None]
  - ASTHENIA [None]
  - CRYING [None]
  - DEPRESSION [None]
  - FATIGUE [None]
  - FEELING ABNORMAL [None]
  - HYPOTENSION [None]
  - MYOCARDIAL ISCHAEMIA [None]
